FAERS Safety Report 18231314 (Version 3)
Quarter: 2023Q1

REPORT INFORMATION
  Report Type: Report from Study
  Country: CA (occurrence: CA)
  Receive Date: 20200904
  Receipt Date: 20230225
  Transmission Date: 20230417
  Serious: Yes (Other)
  Sender: FDA-Public Use
  Company Number: CA-002147023-NVSC2020CA240438

PATIENT
  Age: 56 Year
  Sex: Female

DRUGS (1)
  1. AIMOVIG [Suspect]
     Active Substance: ERENUMAB-AOOE
     Indication: Migraine
     Dosage: UNK
     Route: 065
     Dates: start: 20190307, end: 20230217

REACTIONS (10)
  - Craniocerebral injury [Unknown]
  - Pneumonia [Unknown]
  - Dyspnoea [Unknown]
  - Cough [Unknown]
  - Migraine [Unknown]
  - Headache [Unknown]
  - Stress [Unknown]
  - Joint dislocation [Unknown]
  - Fatigue [Unknown]
  - Product dose omission issue [Unknown]
